FAERS Safety Report 5723942-3 (Version None)
Quarter: 2008Q2

REPORT INFORMATION
  Report Type: 
  Country: None (occurrence: None)
  Receive Date: 20080430
  Receipt Date: 20080421
  Transmission Date: 20081010
  Serious: Yes (Death, Other)
  Sender: FDA-Public Use
  Company Number: US-SANOFI-SYNTHELABO-F01200601428

PATIENT
  Sex: Male

DRUGS (8)
  1. HALDOL [Concomitant]
     Dosage: UNK
  2. FLOMAX [Concomitant]
     Dosage: UNK
  3. ATIVAN [Concomitant]
     Dosage: UNK
  4. ZOCOR [Concomitant]
     Dosage: UNK
  5. VERAPAMIL [Concomitant]
     Dosage: UNK
  6. BEVACIZUMAB [Suspect]
     Route: 042
     Dates: start: 20060425, end: 20060425
  7. CAPECITABINE [Suspect]
     Dosage: TWICE DAILY
     Route: 048
     Dates: start: 20060328, end: 20060509
  8. OXALIPLATIN [Suspect]
     Indication: COLORECTAL CANCER
     Route: 041
     Dates: start: 20060425, end: 20060425

REACTIONS (3)
  - ABDOMINAL PAIN [None]
  - DEATH [None]
  - DIARRHOEA [None]
